FAERS Safety Report 21169770 (Version 1)
Quarter: 2022Q3

REPORT INFORMATION
  Report Type: Spontaneous
  Country: GB (occurrence: GB)
  Receive Date: 20220804
  Receipt Date: 20220804
  Transmission Date: 20221027
  Serious: Yes (Other)
  Sender: FDA-Public Use
  Company Number: None

PATIENT
  Age: 35 Year
  Weight: 147 kg

DRUGS (1)
  1. PREGABALIN [Suspect]
     Active Substance: PREGABALIN
     Indication: Anxiety
     Dosage: 50 MILLIGRAM, BID
     Route: 065

REACTIONS (1)
  - Chest pain [Not Recovered/Not Resolved]

NARRATIVE: CASE EVENT DATE: 20220611
